FAERS Safety Report 7906700-0 (Version None)
Quarter: 2011Q4

REPORT INFORMATION
  Report Type: 
  Country: None (occurrence: None)
  Receive Date: 20111109
  Receipt Date: 20111109
  Transmission Date: 20120403
  Serious: No
  Sender: FDA-Public Use
  Company Number: None

PATIENT
  Sex: Female
  Weight: 54.4316 kg

DRUGS (1)
  1. CLINDAMYCIN [Suspect]
     Indication: NAIL BED INFECTION
     Dosage: 3X DAILY
     Dates: start: 20110718, end: 20110801

REACTIONS (3)
  - DIARRHOEA [None]
  - CLOSTRIDIAL INFECTION [None]
  - NAUSEA [None]
